FAERS Safety Report 13668795 (Version 1)
Quarter: 2017Q2

REPORT INFORMATION
  Report Type: Spontaneous
  Country: AR (occurrence: AR)
  Receive Date: 20170620
  Receipt Date: 20170620
  Transmission Date: 20170830
  Serious: Yes (Other)
  Sender: FDA-Public Use
  Company Number: AR-PFIZER INC-2017008837

PATIENT
  Age: 55 Year
  Sex: Female

DRUGS (1)
  1. SUTENT [Suspect]
     Active Substance: SUNITINIB MALATE
     Indication: METASTATIC RENAL CELL CARCINOMA
     Dosage: 50 MG, CYCLIC (7 DAYS ON AND 5 DAYS OFF)
     Dates: start: 20140820, end: 20161228

REACTIONS (6)
  - Joint dislocation [Not Recovered/Not Resolved]
  - Tooth loss [Recovering/Resolving]
  - Feeding disorder [Recovering/Resolving]
  - Toothache [Recovering/Resolving]
  - Weight decreased [Recovering/Resolving]
  - Limb asymmetry [Not Recovered/Not Resolved]

NARRATIVE: CASE EVENT DATE: 2014
